FAERS Safety Report 9339544 (Version 1)
Quarter: 2013Q2

REPORT INFORMATION
  Report Type: Spontaneous
  Country: US (occurrence: None)
  Receive Date: 20130610
  Receipt Date: 20130610
  Transmission Date: 20140414
  Serious: Yes (Death)
  Sender: FDA-Public Use
  Company Number: None

PATIENT
  Age: 74 Year
  Sex: Male
  Weight: 90.9 kg

DRUGS (1)
  1. METHYLPREDNISONE [Suspect]
     Dosage: REFER TO QUESTION # 5??10-18-09 - 4 DOSES OF 125MG
     Dates: start: 20091018

REACTIONS (6)
  - Overdose [None]
  - Infection [None]
  - Stevens-Johnson syndrome [None]
  - Dialysis [None]
  - Victim of abuse [None]
  - Victim of crime [None]
